FAERS Safety Report 13755467 (Version 2)
Quarter: 2017Q3

REPORT INFORMATION
  Report Type: Spontaneous
  Country: US (occurrence: US)
  Receive Date: 20170714
  Receipt Date: 20170824
  Transmission Date: 20171127
  Serious: No
  Sender: FDA-Public Use
  Company Number: US-PFIZER INC-2017306719

PATIENT
  Age: 54 Year
  Sex: Male
  Weight: 102 kg

DRUGS (1)
  1. NICOTROL [Suspect]
     Active Substance: NICOTINE
     Indication: SMOKING CESSATION THERAPY
     Dosage: 4 MG, AS NEEDED
     Route: 055
     Dates: start: 20170711

REACTIONS (2)
  - Dysgeusia [Unknown]
  - Nervousness [Unknown]

NARRATIVE: CASE EVENT DATE: 201707
